FAERS Safety Report 10221049 (Version 1)
Quarter: 2014Q2

REPORT INFORMATION
  Report Type: Spontaneous
  Country: DK (occurrence: ZA)
  Receive Date: 20140606
  Receipt Date: 20140606
  Transmission Date: 20141212
  Serious: Yes (Other)
  Sender: FDA-Public Use
  Company Number: ZA-FRI-1000067895

PATIENT
  Age: 16 Year
  Sex: Male

DRUGS (3)
  1. ESCITALOPRAM [Suspect]
     Indication: MAJOR DEPRESSION
  2. STRATTERA [Concomitant]
  3. EPITEC [Concomitant]

REACTIONS (2)
  - Convulsion [Unknown]
  - Off label use [Unknown]
